FAERS Safety Report 24006117 (Version 1)
Quarter: 2024Q2

REPORT INFORMATION
  Report Type: Spontaneous
  Country: US (occurrence: US)
  Receive Date: 20240624
  Receipt Date: 20240624
  Transmission Date: 20240716
  Serious: No
  Sender: FDA-Public Use
  Company Number: US-MYLANLABS-2024M1057072

PATIENT
  Sex: Male

DRUGS (1)
  1. LIPITOR [Suspect]
     Active Substance: ATORVASTATIN CALCIUM
     Indication: Blood cholesterol increased
     Dosage: UNK
     Route: 065

REACTIONS (2)
  - Hypersensitivity [Unknown]
  - Myalgia [Unknown]
